FAERS Safety Report 8348873-4 (Version None)
Quarter: 2012Q2

REPORT INFORMATION
  Report Type: 
  Country: None (occurrence: None)
  Receive Date: 20120508
  Receipt Date: 20120423
  Transmission Date: 20120825
  Serious: No
  Sender: FDA-Public Use
  Company Number: JPI-P-011784

PATIENT
  Age: 55 Year
  Sex: Female
  Weight: 69.8539 kg

DRUGS (8)
  1. TRAZODONE HYDROCHLORIDE [Concomitant]
  2. PREGABALIN [Concomitant]
  3. METOPROLOL SUCCINATE [Concomitant]
  4. TIZANIDINE [Concomitant]
  5. DULOXETINE HYDROCHLORIDE [Concomitant]
  6. XYREM [Suspect]
     Indication: FIBROMYALGIA
     Dosage: UNKNOWN, 2 IN 1 D, ORAL
     Route: 048
     Dates: start: 20080901
  7. TRAMADOL HCL [Concomitant]
  8. ATOMOXETINE HCL [Concomitant]

REACTIONS (2)
  - SCIATICA [None]
  - ABNORMAL DREAMS [None]
